FAERS Safety Report 9519326 (Version 1)
Quarter: 2013Q3

REPORT INFORMATION
  Report Type: Spontaneous
  Country: US (occurrence: None)
  Receive Date: 20130911
  Receipt Date: 20130911
  Transmission Date: 20140515
  Serious: Yes (Hospitalization)
  Sender: FDA-Public Use
  Company Number: None

PATIENT
  Age: 69 Year
  Sex: Male
  Weight: 114.7 kg

DRUGS (1)
  1. LITHIUM [Suspect]
     Indication: SCHIZOPHRENIA, PARANOID TYPE
     Route: 048
     Dates: start: 20000814, end: 20120803

REACTIONS (5)
  - Renal failure acute [None]
  - Antipsychotic drug level increased [None]
  - Dizziness [None]
  - Dehydration [None]
  - Diabetes mellitus inadequate control [None]
